FAERS Safety Report 7526126-1 (Version None)
Quarter: 2011Q2

REPORT INFORMATION
  Report Type: 
  Country: None (occurrence: None)
  Receive Date: 20110606
  Receipt Date: 20110527
  Transmission Date: 20111010
  Serious: Yes (Hospitalization, Disabling)
  Sender: FDA-Public Use
  Company Number: US-MERCK-1103USA00413

PATIENT
  Age: 63 Year
  Sex: Female
  Weight: 64 kg

DRUGS (4)
  1. FOSAMAX [Suspect]
     Route: 048
     Dates: start: 20000101, end: 20020101
  2. VITAMINS (UNSPECIFIED) [Concomitant]
     Route: 065
     Dates: start: 20000101
  3. FOSAMAX [Suspect]
     Indication: OSTEOPOROSIS
     Route: 048
     Dates: start: 20000101, end: 20080101
  4. ALENDRONATE SODIUM [Suspect]
     Indication: OSTEOPOROSIS
     Route: 048
     Dates: start: 20080526

REACTIONS (27)
  - FEMUR FRACTURE [None]
  - MALAISE [None]
  - HYPERCHOLESTEROLAEMIA [None]
  - PELVIC MASS [None]
  - INGROWING NAIL [None]
  - THYROID DISORDER [None]
  - GASTRITIS [None]
  - MUSCULOSKELETAL PAIN [None]
  - PAIN IN EXTREMITY [None]
  - CATARACT [None]
  - FALL [None]
  - HYPERTENSION [None]
  - ONYCHALGIA [None]
  - JOINT CREPITATION [None]
  - MUSCLE STRAIN [None]
  - IMPAIRED HEALING [None]
  - SPINAL OSTEOARTHRITIS [None]
  - DIABETES MELLITUS [None]
  - BALANCE DISORDER [None]
  - ANAEMIA [None]
  - ARTHRITIS [None]
  - DEVICE FAILURE [None]
  - GASTROOESOPHAGEAL REFLUX DISEASE [None]
  - LIMB INJURY [None]
  - ARTHRALGIA [None]
  - TOOTH DISORDER [None]
  - FRACTURE DELAYED UNION [None]
